FAERS Safety Report 14586888 (Version 6)
Quarter: 2018Q3

REPORT INFORMATION
  Report Type: Spontaneous
  Country: FR (occurrence: FR)
  Receive Date: 20180301
  Receipt Date: 20180904
  Transmission Date: 20181010
  Serious: Yes (Other)
  Sender: FDA-Public Use
  Company Number: FR-AUROBINDO-AUR-APL-2018-010152

PATIENT
  Age: 60 Year
  Sex: Male

DRUGS (11)
  1. SALMETEROL [Suspect]
     Active Substance: SALMETEROL
     Dosage: 0.1 MILLIGRAM
     Route: 065
  2. FLUTICASONE. [Suspect]
     Active Substance: FLUTICASONE
     Indication: PRODUCT USED FOR UNKNOWN INDICATION
     Dosage: DOSE: 55G/DAY
     Route: 045
  3. FLUTICASONE. [Suspect]
     Active Substance: FLUTICASONE
     Dosage: 1000 UG,QD
     Route: 065
  4. LEVOCETIRIZINE [Suspect]
     Active Substance: LEVOCETIRIZINE
     Indication: PRODUCT USED FOR UNKNOWN INDICATION
     Dosage: 5 MILLIGRAM, ONCE A DAY
     Route: 065
  5. FLUTICASONE. [Suspect]
     Active Substance: FLUTICASONE
     Dosage: 0.06 MILLIGRAM
     Route: 045
  6. SALBUTAMOL [Suspect]
     Active Substance: ALBUTEROL
     Indication: PRODUCT USED FOR UNKNOWN INDICATION
     Dosage: 6 PUFFS/DAY
     Route: 065
  7. AZITHROMYCIN FILM?COATED TABLETS [Suspect]
     Active Substance: AZITHROMYCIN ANHYDROUS
     Indication: PROPHYLAXIS
     Dosage: 250 MILLIGRAM,EVERY OTHER DAY FOR 3 MONTHS
     Route: 065
  8. MONTELUKAST [Suspect]
     Active Substance: MONTELUKAST SODIUM
     Indication: PRODUCT USED FOR UNKNOWN INDICATION
     Dosage: 10 MILLIGRAM, DAILY
     Route: 065
  9. FLUTICASONE. [Suspect]
     Active Substance: FLUTICASONE
     Dosage: 1 MILLIGRAM
     Route: 045
  10. SALBUTAMOL SULFATE [Suspect]
     Active Substance: ALBUTEROL SULFATE
     Indication: PRODUCT USED FOR UNKNOWN INDICATION
     Dosage: 6 DOSAGE FORM, ONCE A DAY (6 PUFFS/DAY)
     Route: 065
  11. SALMETEROL [Suspect]
     Active Substance: SALMETEROL
     Indication: PRODUCT USED FOR UNKNOWN INDICATION
     Dosage: 6 PUFFS/DAY; 100 G/DAY
     Route: 065

REACTIONS (5)
  - Drug ineffective [Unknown]
  - Sinusitis [Unknown]
  - Lung infection [Unknown]
  - Hypogammaglobulinaemia [Unknown]
  - Asthma [Recovering/Resolving]
